FAERS Safety Report 8814162 (Version 1)
Quarter: 2012Q4

REPORT INFORMATION
  Report Type: Spontaneous
  Country: US (occurrence: None)
  Receive Date: 20120926
  Receipt Date: 20120926
  Transmission Date: 20130627
  Serious: Yes (Other)
  Sender: FDA-Public Use
  Company Number: None

PATIENT
  Age: 71 Year
  Sex: Female
  Weight: 67.59 kg

DRUGS (1)
  1. CLINDAMYCIN [Suspect]
     Indication: TOOTH ABSCESS
     Route: 048
     Dates: start: 20120905, end: 20120913

REACTIONS (6)
  - Diarrhoea [None]
  - Vomiting [None]
  - Hypophagia [None]
  - Dehydration [None]
  - Blood pressure decreased [None]
  - Weight decreased [None]
